FAERS Safety Report 15593608 (Version 1)
Quarter: 2018Q4

REPORT INFORMATION
  Report Type: Spontaneous
  Country: US (occurrence: US)
  Receive Date: 20181106
  Receipt Date: 20181106
  Transmission Date: 20190205
  Serious: Yes (Hospitalization)
  Sender: FDA-Public Use
  Company Number: US-PFIZER INC-2018455280

PATIENT
  Age: 60 Year
  Sex: Female

DRUGS (1)
  1. XELJANZ [Suspect]
     Active Substance: TOFACITINIB CITRATE
     Dosage: 5 MG, 2X/DAY

REACTIONS (7)
  - Alopecia [Unknown]
  - Dehydration [Unknown]
  - Renal disorder [Unknown]
  - Thinking abnormal [Unknown]
  - Dyspnoea [Unknown]
  - Gait disturbance [Unknown]
  - Pneumonia [Unknown]
